FAERS Safety Report 6644081-3 (Version None)
Quarter: 2010Q1

REPORT INFORMATION
  Report Type: 
  Country: None (occurrence: None)
  Receive Date: 20100304
  Receipt Date: 20091011
  Transmission Date: 20100710
  Serious: Yes (Other)
  Sender: FDA-Public Use
  Company Number: 20091012CINRY1187

PATIENT
  Age: 30 Year
  Sex: Female

DRUGS (2)
  1. CINRYZE [Suspect]
     Indication: HEREDITARY ANGIOEDEMA
     Dosage: (1000 UNITS, MONDAYS AND THURSDAYS), INTRAVENOUS
     Route: 042
     Dates: start: 20060101
  2. CINRYZE [Suspect]
     Indication: PROPHYLAXIS
     Dosage: (1000 UNITS, MONDAYS AND THURSDAYS), INTRAVENOUS
     Route: 042
     Dates: start: 20060101

REACTIONS (5)
  - CONDITION AGGRAVATED [None]
  - FATIGUE [None]
  - HEREDITARY ANGIOEDEMA [None]
  - INSOMNIA [None]
  - NASOPHARYNGITIS [None]
